FAERS Safety Report 5279547-4 (Version None)
Quarter: 2007Q1

REPORT INFORMATION
  Report Type: 
  Country: None (occurrence: None)
  Receive Date: 20070328
  Receipt Date: 20070316
  Transmission Date: 20070707
  Serious: Yes (Death, Other)
  Sender: FDA-Public Use
  Company Number: US-PFIZER INC-2007021169

PATIENT
  Sex: Male

DRUGS (4)
  1. CELEBREX [Suspect]
  2. CYTOXAN [Suspect]
     Indication: METASTATIC NEOPLASM
  3. THALOMID [Suspect]
     Indication: METASTATIC NEOPLASM
     Route: 048
     Dates: start: 20060203, end: 20060101
  4. ETOPOSIDE [Suspect]

REACTIONS (3)
  - DISEASE PROGRESSION [None]
  - METASTASIS [None]
  - NEUROPATHY PERIPHERAL [None]
